FAERS Safety Report 6263460-X (Version None)
Quarter: 2009Q3

REPORT INFORMATION
  Report Type: 
  Country: None (occurrence: None)
  Receive Date: 20090710
  Receipt Date: 20090318
  Transmission Date: 20100115
  Serious: No
  Sender: FDA-Public Use
  Company Number: A0774030A

PATIENT
  Age: 18 Year
  Sex: Female

DRUGS (2)
  1. FLOVENT [Suspect]
     Dosage: 2PUFF TWICE PER DAY
     Route: 055
     Dates: start: 20080316, end: 20080317
  2. PROAIR HFA [Concomitant]

REACTIONS (5)
  - HYPERSENSITIVITY [None]
  - INFLAMMATION [None]
  - PRURITUS [None]
  - RASH [None]
  - URTICARIA [None]
